FAERS Safety Report 6016611-6 (Version None)
Quarter: 2008Q4

REPORT INFORMATION
  Report Type: 
  Country: None (occurrence: None)
  Receive Date: 20081222
  Receipt Date: 20081212
  Transmission Date: 20090506
  Serious: Yes (Hospitalization)
  Sender: FDA-Public Use
  Company Number: PHHY2008CH31754

PATIENT
  Sex: Female

DRUGS (2)
  1. FEMARA [Suspect]
     Indication: BREAST CANCER
     Dosage: UNK
  2. PROCAINE HYDROCHLORIDE INJ [Suspect]
     Indication: ALOPECIA
     Dosage: 15 ML
     Route: 058
     Dates: start: 20081113

REACTIONS (11)
  - BALANCE DISORDER [None]
  - CEREBRAL HAEMORRHAGE [None]
  - CSF PROTEIN [None]
  - ENCEPHALOPATHY [None]
  - ENDOTRACHEAL INTUBATION [None]
  - EXTENSOR PLANTAR RESPONSE [None]
  - GLASGOW COMA SCALE ABNORMAL [None]
  - HYPERTENSION [None]
  - LOSS OF CONSCIOUSNESS [None]
  - TACHYCARDIA [None]
  - TONIC CLONIC MOVEMENTS [None]
